FAERS Safety Report 5169429-0 (Version None)
Quarter: 2006Q4

REPORT INFORMATION
  Report Type: 
  Country: None (occurrence: None)
  Receive Date: 20061201
  Receipt Date: 20061122
  Transmission Date: 20070319
  Serious: Yes (Hospitalization)
  Sender: FDA-Public Use
  Company Number: 2006145286

PATIENT
  Age: 42 Year
  Sex: Female

DRUGS (2)
  1. FRAGMIN [Suspect]
     Indication: PULMONARY EMBOLISM
     Dates: start: 20060514, end: 20060517
  2. DESOLETT (DESOGESTREL, ETHINYLESTRADIOL) [Suspect]
     Indication: CONTRACEPTION
     Dosage: ORAL
     Route: 048
     Dates: start: 19970101, end: 20060514

REACTIONS (3)
  - PRURITUS [None]
  - PULMONARY EMBOLISM [None]
  - RASH [None]
